FAERS Safety Report 20945705 (Version 1)
Quarter: 2022Q2

REPORT INFORMATION
  Report Type: Report from Study
  Country: CA (occurrence: CA)
  Receive Date: 20220610
  Receipt Date: 20220610
  Transmission Date: 20220721
  Serious: Yes (Other)
  Sender: FDA-Public Use
  Company Number: CA-JNJFOC-20220450408

PATIENT
  Age: 66 Year
  Sex: Male

DRUGS (4)
  1. REMICADE [Suspect]
     Active Substance: INFLIXIMAB
     Indication: Crohn^s disease
     Dosage: ON 02-MAY-2022, PATIENT RECEIVED 66TH INFLIXIMAB, RECOMBINANT INFUSION AT DOSE OF 1000 MG AND PARTIA
     Route: 042
     Dates: start: 20141021
  2. AMOXIL [Suspect]
     Active Substance: AMOXICILLIN
     Indication: Oropharyngeal pain
     Route: 065
     Dates: start: 202204, end: 20220501
  3. ASTRAZENECA COVID-19 VACCINE [Concomitant]
     Active Substance: AZD-1222
     Indication: Immunisation
     Dosage: 2 DOSES
     Route: 065
  4. PFIZER-BIONTECH COVID-19 VACCINE [Concomitant]
     Active Substance: TOZINAMERAN
     Indication: Immunisation
     Dosage: 1 DOSE
     Route: 065

REACTIONS (4)
  - COVID-19 [Unknown]
  - Cystitis [Unknown]
  - Diarrhoea [Unknown]
  - Frequent bowel movements [Unknown]

NARRATIVE: CASE EVENT DATE: 20220501
